FAERS Safety Report 6193525-2 (Version None)
Quarter: 2009Q2

REPORT INFORMATION
  Report Type: 
  Country: None (occurrence: None)
  Receive Date: 20090518
  Receipt Date: 20081231
  Transmission Date: 20091009
  Serious: Yes (Other)
  Sender: FDA-Public Use
  Company Number: CH-BIOGENIDEC-2009BI003142

PATIENT
  Age: 66 Year
  Sex: Female

DRUGS (1)
  1. AVONEX [Suspect]
     Indication: RELAPSING-REMITTING MULTIPLE SCLEROSIS

REACTIONS (5)
  - ARTHRALGIA [None]
  - GASTRIC CANCER [None]
  - MYALGIA [None]
  - RAYNAUD'S PHENOMENON [None]
  - SCLERODACTYLIA [None]
